FAERS Safety Report 4475823-3 (Version None)
Quarter: 2004Q3

REPORT INFORMATION
  Report Type: 
  Country: None (occurrence: None)
  Receive Date: 20040923
  Receipt Date: 20040809
  Transmission Date: 20050211
  Serious: No
  Sender: FDA-Public Use
  Company Number: USA040772157

PATIENT
  Age: 81 Year
  Sex: Female
  Weight: 47 kg

DRUGS (7)
  1. FORTEO [Suspect]
     Indication: OSTEOPOROSIS
     Dosage: 20 UG DAY
     Dates: start: 20040201
  2. PROZAC [Concomitant]
  3. ATROVENT [Concomitant]
  4. LIPITOR [Concomitant]
  5. DITROPAN XL [Concomitant]
  6. AEROBID [Concomitant]
  7. ARICEPT [Concomitant]

REACTIONS (3)
  - FALL [None]
  - PAIN [None]
  - WRIST FRACTURE [None]
